FAERS Safety Report 4899674-0 (Version None)
Quarter: 2006Q1

REPORT INFORMATION
  Report Type: 
  Country: None (occurrence: None)
  Receive Date: 20060202
  Receipt Date: 20051020
  Transmission Date: 20060701
  Serious: Yes (Other)
  Sender: FDA-Public Use
  Company Number: US-MERCK-0510USA08365

PATIENT
  Age: 61 Year
  Sex: Female

DRUGS (8)
  1. VIOXX [Suspect]
     Indication: ARTHRITIS
     Route: 048
     Dates: start: 19991119
  2. VIOXX [Suspect]
     Indication: PAIN
     Route: 048
     Dates: start: 19991119
  3. ULTRAM [Concomitant]
     Route: 065
  4. VASOTEC [Concomitant]
     Route: 065
  5. LASIX [Concomitant]
     Route: 065
  6. ASPIRIN [Concomitant]
     Route: 065
  7. PREMARIN [Concomitant]
     Route: 065
  8. BENTYL [Concomitant]
     Route: 065

REACTIONS (3)
  - CEREBROVASCULAR ACCIDENT [None]
  - CHILLS [None]
  - COUGH [None]
